FAERS Safety Report 24657327 (Version 4)
Quarter: 2025Q1

REPORT INFORMATION
  Report Type: Report from Study
  Country: CA (occurrence: CA)
  Receive Date: 20241125
  Receipt Date: 20250204
  Transmission Date: 20250409
  Serious: Yes (Other)
  Sender: TAKEDA
  Company Number: CA-TAKEDA-2024TUS114690

PATIENT
  Age: 75 Year
  Sex: Female

DRUGS (14)
  1. VEDOLIZUMAB [Suspect]
     Active Substance: VEDOLIZUMAB
     Indication: Colitis ulcerative
  2. VEDOLIZUMAB [Suspect]
     Active Substance: VEDOLIZUMAB
     Dosage: 300 MILLIGRAM, Q4WEEKS
     Dates: start: 20241205, end: 20250102
  3. PANTOPRAZOLE SODIUM [Suspect]
     Active Substance: PANTOPRAZOLE SODIUM
     Indication: Product used for unknown indication
  4. HYDROCORTISONE ACETATE [Suspect]
     Active Substance: HYDROCORTISONE ACETATE
     Indication: Product used for unknown indication
     Dates: start: 20240724, end: 20240917
  5. MESALAMINE [Concomitant]
     Active Substance: MESALAMINE
  6. CHOLECALCIFEROL [Concomitant]
     Active Substance: CHOLECALCIFEROL
     Dosage: 10000 INTERNATIONAL UNIT, 1/WEEK
  7. VENTOLIN [Concomitant]
     Active Substance: ALBUTEROL SULFATE
  8. PENTASA [Concomitant]
     Active Substance: MESALAMINE
  9. FLUTICASONE FUROATE [Concomitant]
     Active Substance: FLUTICASONE FUROATE
  10. FLOVENT [Concomitant]
     Active Substance: FLUTICASONE PROPIONATE
  11. PEPCID AC [Concomitant]
     Active Substance: FAMOTIDINE
  12. Salofalk [Concomitant]
  13. PREDNISONE [Concomitant]
     Active Substance: PREDNISONE
  14. CALCIUM [Concomitant]
     Active Substance: CALCIUM

REACTIONS (15)
  - Haematochezia [Not Recovered/Not Resolved]
  - Colitis ulcerative [Recovering/Resolving]
  - Hypoaesthesia [Unknown]
  - Frequent bowel movements [Unknown]
  - Rectal tenesmus [Unknown]
  - Anal incontinence [Not Recovered/Not Resolved]
  - Diarrhoea [Unknown]
  - Off label use [Unknown]
  - Abdominal pain [Unknown]
  - Blood pressure increased [Unknown]
  - Chills [Unknown]
  - Defaecation urgency [Recovered/Resolved]
  - Muscle tightness [Recovered/Resolved]
  - Hot flush [Recovered/Resolved]
  - Nausea [Recovered/Resolved]

NARRATIVE: CASE EVENT DATE: 20241205
